FAERS Safety Report 7243368-3 (Version None)
Quarter: 2011Q1

REPORT INFORMATION
  Report Type: 
  Country: None (occurrence: None)
  Receive Date: 20110125
  Receipt Date: 20110119
  Transmission Date: 20110831
  Serious: Yes (Other)
  Sender: FDA-Public Use
  Company Number: US-PURDUE-USA-2010-0049280

PATIENT
  Sex: Female

DRUGS (3)
  1. OXYCONTIN [Suspect]
     Indication: BACK PAIN
     Dosage: 80 MG, SEE TEXT
     Route: 048
     Dates: start: 20100916
  2. OXYCONTIN [Suspect]
     Indication: SCOLIOSIS
  3. OXYCONTIN [Suspect]
     Indication: FEMUR FRACTURE

REACTIONS (12)
  - JAUNDICE [None]
  - DRUG INEFFECTIVE [None]
  - HEADACHE [None]
  - PAIN [None]
  - ABDOMINAL PAIN UPPER [None]
  - CONSTIPATION [None]
  - DRUG INTOLERANCE [None]
  - INADEQUATE ANALGESIA [None]
  - ABDOMINAL DISCOMFORT [None]
  - MIGRAINE [None]
  - GASTROOESOPHAGEAL REFLUX DISEASE [None]
  - GENERAL PHYSICAL HEALTH DETERIORATION [None]
